FAERS Safety Report 24584552 (Version 1)
Quarter: 2024Q4

REPORT INFORMATION
  Report Type: Spontaneous
  Country: US (occurrence: US)
  Receive Date: 20241106
  Receipt Date: 20241106
  Transmission Date: 20250114
  Serious: Yes (Other)
  Sender: PFIZER
  Company Number: US-PFIZER INC-PV202400141552

PATIENT
  Age: 87 Year
  Sex: Female
  Weight: 58.957 kg

DRUGS (1)
  1. VYNDAMAX [Suspect]
     Active Substance: TAFAMIDIS
     Indication: Cardiac amyloidosis
     Dosage: 61 MG, 1X/DAY, [ONE 61 MG TAFAMIDIS CAPSULE ORALLY ONCE DAILY]
     Route: 048
     Dates: start: 2023

REACTIONS (9)
  - Neuropathy peripheral [Unknown]
  - Sinus arrest [Unknown]
  - Fatigue [Recovering/Resolving]
  - Viral infection [Unknown]
  - Renal cyst [Unknown]
  - Blood cholesterol increased [Unknown]
  - Blood potassium increased [Unknown]
  - High density lipoprotein increased [Unknown]
  - Low density lipoprotein increased [Unknown]

NARRATIVE: CASE EVENT DATE: 20230101
